FAERS Safety Report 5358385-8 (Version None)
Quarter: 2007Q2

REPORT INFORMATION
  Report Type: 
  Country: None (occurrence: None)
  Receive Date: 20070615
  Receipt Date: 20070607
  Transmission Date: 20071010
  Serious: Yes (Hospitalization)
  Sender: FDA-Public Use
  Company Number: US-PFIZER INC-2007048009

PATIENT
  Age: 74 Year
  Sex: Female

DRUGS (1)
  1. SU-011,248 [Suspect]
     Indication: THYROID CANCER METASTATIC
     Route: 048
     Dates: start: 20061227, end: 20070525

REACTIONS (5)
  - BLOOD CREATININE INCREASED [None]
  - INFECTION [None]
  - RENAL FAILURE [None]
  - RHABDOMYOLYSIS [None]
  - THROMBOCYTOPENIA [None]
